FAERS Safety Report 15609235 (Version 1)
Quarter: 2018Q4

REPORT INFORMATION
  Report Type: Spontaneous
  Country: None (occurrence: DE)
  Receive Date: 20181112
  Receipt Date: 20181112
  Transmission Date: 20190205
  Serious: Yes (Other)
  Sender: FDA-Public Use
  Company Number: DE-LABORATOIRE HRA PHARMA-2058752

PATIENT
  Age: 45 Year
  Sex: Female
  Weight: 48 kg

DRUGS (1)
  1. ELLA [Suspect]
     Active Substance: ULIPRISTAL ACETATE
     Indication: PRODUCT USED FOR UNKNOWN INDICATION
     Route: 048
     Dates: start: 20180623, end: 20180623

REACTIONS (3)
  - Cyst removal [Recovered/Resolved]
  - Dyspnoea [Recovered/Resolved]
  - Cervical cyst [Recovered/Resolved]

NARRATIVE: CASE EVENT DATE: 20180623
